FAERS Safety Report 24378038 (Version 1)
Quarter: 2024Q3

REPORT INFORMATION
  Report Type: Spontaneous
  Country: CN (occurrence: CN)
  Receive Date: 20240930
  Receipt Date: 20240930
  Transmission Date: 20241016
  Serious: Yes (Death, Hospitalization, Other)
  Sender: CHEPLAPHARM
  Company Number: CN-CHEPLA-2024012239

PATIENT
  Age: 19 Year
  Sex: Male

DRUGS (9)
  1. VALGANCICLOVIR [Suspect]
     Active Substance: VALGANCICLOVIR
     Indication: Pneumonia cytomegaloviral
     Dates: start: 202104
  2. GANCICLOVIR [Suspect]
     Active Substance: GANCICLOVIR
     Indication: Pneumonia cytomegaloviral
     Dates: start: 202201
  3. IMIPENEM AND CILASTATIN [Suspect]
     Active Substance: CILASTATIN SODIUM\IMIPENEM
     Dates: start: 202201
  4. CASPOFUNGIN [Suspect]
     Active Substance: CASPOFUNGIN
     Dates: start: 202201
  5. SULFAMETHOXAZOLE [Suspect]
     Active Substance: SULFAMETHOXAZOLE
     Dates: start: 202201
  6. SORAFENIB [Suspect]
     Active Substance: SORAFENIB
     Dosage: 0.8 G QD?DAILY DOSE: 0.8 GRAM
     Dates: start: 202103
  7. POSACONAZOLE [Suspect]
     Active Substance: POSACONAZOLE
     Indication: Antifungal prophylaxis
     Dates: start: 202201
  8. ITRACONAZOLE [Suspect]
     Active Substance: ITRACONAZOLE
     Indication: Antifungal prophylaxis
     Dates: start: 202201
  9. CIDOFOVIR [Suspect]
     Active Substance: CIDOFOVIR
     Dates: start: 20220120

REACTIONS (17)
  - Multiple organ dysfunction syndrome [Fatal]
  - Generalised oedema [Unknown]
  - Atypical mycobacterial pneumonia [Recovering/Resolving]
  - Cough [Unknown]
  - Varicella zoster virus infection [Recovering/Resolving]
  - Pneumonia [Unknown]
  - Gastrointestinal disorder [Unknown]
  - Liver disorder [Recovering/Resolving]
  - Agranulocytosis [Recovering/Resolving]
  - Condition aggravated [Unknown]
  - Polyomavirus viraemia [Unknown]
  - Herpes simplex [Unknown]
  - Pneumocystis jirovecii infection [Unknown]
  - Hyperpyrexia [Unknown]
  - Acute kidney injury [Unknown]
  - General physical health deterioration [Unknown]
  - Off label use [Recovered/Resolved]

NARRATIVE: CASE EVENT DATE: 20210701
